FAERS Safety Report 11110021 (Version 2)
Quarter: 2015Q3

REPORT INFORMATION
  Report Type: Report from Study
  Country: DE (occurrence: DE)
  Receive Date: 20150513
  Receipt Date: 20150723
  Transmission Date: 20151125
  Serious: Yes (Hospitalization)
  Sender: FDA-Public Use
  Company Number: PHHY2015DE052797

PATIENT
  Age: 39 Year
  Sex: Female

DRUGS (1)
  1. GILENYA [Suspect]
     Active Substance: FINGOLIMOD HYDROCHLORIDE
     Indication: MULTIPLE SCLEROSIS
     Dosage: 0.5 MG, QD
     Route: 048
     Dates: start: 20130710

REACTIONS (8)
  - Fear of death [Recovering/Resolving]
  - Palpitations [Recovering/Resolving]
  - Cognitive disorder [Recovering/Resolving]
  - Memory impairment [Recovering/Resolving]
  - Hyperhidrosis [Recovering/Resolving]
  - Disturbance in attention [Recovering/Resolving]
  - Panic attack [Recovering/Resolving]
  - Dyspnoea [Recovering/Resolving]

NARRATIVE: CASE EVENT DATE: 20150421
